FAERS Safety Report 7645639-5 (Version None)
Quarter: 2011Q3

REPORT INFORMATION
  Report Type: 
  Country: None (occurrence: None)
  Receive Date: 20110729
  Receipt Date: 20110207
  Transmission Date: 20111222
  Serious: Yes (Other)
  Sender: FDA-Public Use
  Company Number: PHHY2011CA09835

PATIENT
  Age: 45 Year
  Sex: Female

DRUGS (7)
  1. DACLIZUMAB [Suspect]
  2. TACROLIMUS [Suspect]
     Dosage: 3.0 MG, BID
     Route: 048
  3. TACROLIMUS [Suspect]
     Dosage: 2.5 MG, BID
     Route: 048
  4. SIROLIMUS [Suspect]
  5. MYCOPHENOLATE MOFETIL [Suspect]
     Dosage: 1000 MG, BID
     Route: 048
  6. INFLIXIMAB [Suspect]
  7. NEORAL [Suspect]
     Dosage: UNK

REACTIONS (4)
  - ACNE [None]
  - TRANSPLANT REJECTION [None]
  - ALOPECIA [None]
  - OVARIAN NEOPLASM [None]
